FAERS Safety Report 10743282 (Version 2)
Quarter: 2016Q2

REPORT INFORMATION
  Report Type: Spontaneous
  Country: GB (occurrence: GB)
  Receive Date: 20150127
  Receipt Date: 20160516
  Transmission Date: 20160815
  Serious: Yes (Other)
  Sender: FDA-Public Use
  Company Number: PHFR2015GB000873

PATIENT
  Sex: Female

DRUGS (1)
  1. GILENYA [Suspect]
     Active Substance: FINGOLIMOD HYDROCHLORIDE
     Indication: MULTIPLE SCLEROSIS
     Dosage: FETAL DRUG EXPOSURE
     Route: 065
     Dates: start: 201407

REACTIONS (2)
  - Exposure via father [Unknown]
  - Abortion spontaneous [Unknown]
